FAERS Safety Report 25682171 (Version 1)
Quarter: 2025Q3

REPORT INFORMATION
  Report Type: Spontaneous
  Country: US (occurrence: US)
  Receive Date: 20250814
  Receipt Date: 20250814
  Transmission Date: 20251020
  Serious: Yes (Hospitalization)
  Sender: AMGEN
  Company Number: US-AMGEN-USASP2025157805

PATIENT
  Age: 13 Year
  Sex: Female

DRUGS (13)
  1. PREDNISONE [Suspect]
     Active Substance: PREDNISONE
     Indication: Systemic lupus erythematosus
     Dosage: 40 MILLIGRAM, QD
     Route: 065
  2. PREDNISONE [Suspect]
     Active Substance: PREDNISONE
     Route: 065
  3. METHYLPREDNISOLONE [Concomitant]
     Active Substance: METHYLPREDNISOLONE
     Indication: Systemic lupus erythematosus
     Route: 040
  4. METHYLPREDNISOLONE [Concomitant]
     Active Substance: METHYLPREDNISOLONE
     Route: 040
  5. METHYLPREDNISOLONE [Concomitant]
     Active Substance: METHYLPREDNISOLONE
     Route: 040
  6. HYDROXYCHLOROQUINE [Concomitant]
     Active Substance: HYDROXYCHLOROQUINE
     Indication: Systemic lupus erythematosus
     Dosage: 300 MILLIGRAM, QD
  7. HYDROXYCHLOROQUINE [Concomitant]
     Active Substance: HYDROXYCHLOROQUINE
  8. CLOBETASOL [Concomitant]
     Active Substance: CLOBETASOL
     Indication: Systemic lupus erythematosus
  9. KETOCONAZOLE [Concomitant]
     Active Substance: KETOCONAZOLE
     Indication: Systemic lupus erythematosus
  10. MYCOPHENOLATE MOFETIL [Concomitant]
     Active Substance: MYCOPHENOLATE MOFETIL
     Indication: Systemic lupus erythematosus
  11. BELIMUMAB [Concomitant]
     Active Substance: BELIMUMAB
     Indication: Systemic lupus erythematosus
     Dosage: 200 MILLIGRAM, QWK
     Route: 058
  12. BELIMUMAB [Concomitant]
     Active Substance: BELIMUMAB
     Route: 058
  13. RUXOLITINIB [Concomitant]
     Active Substance: RUXOLITINIB
     Indication: Systemic lupus erythematosus

REACTIONS (11)
  - Abdominal pain [Recovering/Resolving]
  - Diarrhoea [Recovering/Resolving]
  - Hypotension [Recovering/Resolving]
  - Anaemia [Recovering/Resolving]
  - Leukopenia [Recovering/Resolving]
  - Hypertransaminasaemia [Recovering/Resolving]
  - Hyperferritinaemia [Recovering/Resolving]
  - Inflammatory marker increased [Recovering/Resolving]
  - Chronic gastritis [Recovering/Resolving]
  - Colitis [Recovering/Resolving]
  - Complement factor decreased [Recovering/Resolving]
